FAERS Safety Report 24065559 (Version 1)
Quarter: 2024Q3

REPORT INFORMATION
  Report Type: Spontaneous
  Country: US (occurrence: US)
  Receive Date: 20240709
  Receipt Date: 20240709
  Transmission Date: 20241016
  Serious: No
  Sender: PFIZER
  Company Number: US-PFIZER INC-202300288371

PATIENT
  Age: 18 Year
  Sex: Male

DRUGS (2)
  1. CIBINQO [Suspect]
     Active Substance: ABROCITINIB
     Indication: Dermatitis atopic
     Dosage: 100 MG, 1X/DAY (100 MG PO ONCE DAILY)
     Dates: start: 202308
  2. CIBINQO [Suspect]
     Active Substance: ABROCITINIB
     Dosage: 200 MG
     Dates: start: 202401

REACTIONS (1)
  - Dermatitis atopic [Unknown]
